FAERS Safety Report 8988092 (Version 1)
Quarter: 2012Q4

REPORT INFORMATION
  Report Type: 
  Country: DE (occurrence: DE)
  Receive Date: 20121227
  Receipt Date: 20121227
  Transmission Date: 20130627
  Serious: Yes (Hospitalization)
  Sender: FDA-Public Use
  Company Number: DE-FRI-1000041255

PATIENT
  Age: 62 Year
  Sex: Male

DRUGS (4)
  1. ROFLUMILAST [Suspect]
     Indication: CHRONIC OBSTRUCTIVE PULMONARY DISEASE
     Dosage: 500 mcg
     Route: 048
     Dates: start: 20120411, end: 20120729
  2. BERODUAL [Concomitant]
     Indication: CHRONIC OBSTRUCTIVE PULMONARY DISEASE
     Route: 055
  3. SYMBICORT TURBOHALER [Concomitant]
     Indication: CHRONIC OBSTRUCTIVE PULMONARY DISEASE
     Dosage: 160 mg/4.5 mg
     Route: 055
  4. SPIRIVA [Concomitant]
     Indication: CHRONIC OBSTRUCTIVE PULMONARY DISEASE
     Route: 055

REACTIONS (1)
  - Hepatitis [Not Recovered/Not Resolved]
